FAERS Safety Report 9342358 (Version 1)
Quarter: 2013Q2

REPORT INFORMATION
  Report Type: Spontaneous
  Country: GB (occurrence: GB)
  Receive Date: 20130611
  Receipt Date: 20130611
  Transmission Date: 20140414
  Serious: Yes (Death, Other)
  Sender: FDA-Public Use
  Company Number: GB-OTSUKA-EU-2013-10141

PATIENT
  Sex: Male

DRUGS (1)
  1. SAMSCA [Suspect]
     Indication: INAPPROPRIATE ANTIDIURETIC HORMONE SECRETION
     Dosage: UNK, QD
     Route: 048

REACTIONS (3)
  - Multi-organ failure [Fatal]
  - Renal failure acute [Not Recovered/Not Resolved]
  - Liver function test abnormal [Not Recovered/Not Resolved]
